FAERS Safety Report 10872876 (Version 1)
Quarter: 2015Q1

REPORT INFORMATION
  Report Type: Spontaneous
  Country: FR (occurrence: FR)
  Receive Date: 20150227
  Receipt Date: 20150227
  Transmission Date: 20150721
  Serious: Yes (Death)
  Sender: FDA-Public Use
  Company Number: FR-TEVA-543385ISR

PATIENT
  Age: 83 Year
  Sex: Male

DRUGS (1)
  1. TICLOPIDINE [Suspect]
     Active Substance: TICLOPIDINE

REACTIONS (1)
  - Cerebral haemorrhage [Fatal]
